FAERS Safety Report 16774232 (Version 1)
Quarter: 2019Q3

REPORT INFORMATION
  Report Type: Report from Study
  Country: CN (occurrence: CN)
  Receive Date: 20190905
  Receipt Date: 20190905
  Transmission Date: 20191005
  Serious: Yes (Death, Other)
  Sender: FDA-Public Use
  Company Number: CN-ROCHE-2154045

PATIENT
  Age: 68 Year
  Sex: Female
  Weight: 60 kg

DRUGS (1)
  1. AVASTIN [Suspect]
     Active Substance: BEVACIZUMAB
     Indication: COLORECTAL CANCER
     Route: 042
     Dates: start: 20170816

REACTIONS (8)
  - Defaecation disorder [Unknown]
  - Platelet count decreased [Unknown]
  - Decreased appetite [Unknown]
  - Mouth haemorrhage [Unknown]
  - Death [Fatal]
  - Proctalgia [Unknown]
  - Pain [Unknown]
  - Coma [Unknown]

NARRATIVE: CASE EVENT DATE: 20190625
